FAERS Safety Report 21194002 (Version 6)
Quarter: 2023Q4

REPORT INFORMATION
  Report Type: Spontaneous
  Country: GB (occurrence: GB)
  Receive Date: 20220810
  Receipt Date: 20231117
  Transmission Date: 20240110
  Serious: Yes (Other)
  Sender: FDA-Public Use
  Company Number: GB-TAKEDA-2021TUS082084

PATIENT
  Age: 74 Year
  Sex: Male

DRUGS (28)
  1. OMEPRAZOLE [Suspect]
     Active Substance: OMEPRAZOLE
     Indication: Product used for unknown indication
     Dosage: 20 MILLIGRAM, QD 20 MILLIGRAM, ONCE DAILY
     Route: 065
  2. ACYCLOVIR [Suspect]
     Active Substance: ACYCLOVIR
     Indication: Product used for unknown indication
     Dosage: 400 MILLIGRAM, BID
     Route: 065
  3. ACYCLOVIR [Suspect]
     Active Substance: ACYCLOVIR
     Dosage: 800 MG, ONCE DAILY (400 MILLIGRAM, BID)
     Route: 065
  4. ACYCLOVIR [Suspect]
     Active Substance: ACYCLOVIR
  5. CALCIUM CARBONATE\CHOLECALCIFEROL [Suspect]
     Active Substance: CALCIUM CARBONATE\CHOLECALCIFEROL
     Indication: Product used for unknown indication
     Dosage: UNK UNK, BID;
     Route: 065
  6. COTRIMOXAZOLE [Suspect]
     Active Substance: SULFAMETHOXAZOLE\TRIMETHOPRIM
     Indication: Product used for unknown indication
     Dosage: UNK UNK, BID ;DOSE NOT REPORTED, FREQUENCY: ONCE DAILY, DOSAGE TEXT: UNK, BID
     Route: 065
  7. DEXAMETHASONE [Suspect]
     Active Substance: DEXAMETHASONE
     Indication: Product used for unknown indication
     Dosage: 10 MILLIGRAM ON DAY 1, 8, 15 AND 22 DAYS
     Route: 065
  8. LOPERAMIDE [Suspect]
     Active Substance: LOPERAMIDE
     Indication: Product used for unknown indication
     Dosage: 2 MILLIGRAM (FREQUENCY NOT REPORTED)
     Route: 065
  9. METOCLOPRAMIDE [Suspect]
     Active Substance: METOCLOPRAMIDE
     Indication: Product used for unknown indication
     Dosage: 10 MILLIGRAM, THREE TIMES A DAY (PRN)
     Route: 065
  10. NINLARO [Suspect]
     Active Substance: IXAZOMIB CITRATE
     Indication: Product used for unknown indication
     Dosage: 2.3 MILLIGRAM, 1/WEEK (2.3 MILLIGRAM, ONCE A WEEK)
     Route: 065
  11. REVLIMID [Suspect]
     Active Substance: LENALIDOMIDE
     Indication: Product used for unknown indication
     Dosage: 15 MILLIGRAM ONCE A DAY ON DAYS 1-21
     Route: 065
  12. REVLIMID [Suspect]
     Active Substance: LENALIDOMIDE
  13. REVLIMID [Suspect]
     Active Substance: LENALIDOMIDE
  14. XARELTO [Suspect]
     Active Substance: RIVAROXABAN
     Indication: Product used for unknown indication
     Dosage: 10 MILLIGRAM, QD (10 MILLIGRAM, ONCE DAILY)
     Route: 065
  15. XARELTO [Suspect]
     Active Substance: RIVAROXABAN
     Dosage: 10 MILLIGRAM, QD (10 MILLIGRAM, ONCE DAILY)
     Route: 065
  16. XARELTO [Suspect]
     Active Substance: RIVAROXABAN
  17. EPOETIN BETA [Suspect]
     Active Substance: ERYTHROPOIETIN
     Indication: Product used for unknown indication
  18. INTERFERON ALFA-2B [Suspect]
     Active Substance: INTERFERON ALFA-2B
     Indication: Product used for unknown indication
  19. INTERFERON ALFA-2B [Suspect]
     Active Substance: INTERFERON ALFA-2B
  20. LIDOCAINE [Suspect]
     Active Substance: LIDOCAINE
     Indication: Product used for unknown indication
  21. LIDOCAINE [Suspect]
     Active Substance: LIDOCAINE
  22. FENPIVERINIUM BROMIDE [Suspect]
     Active Substance: FENPIVERINIUM BROMIDE
     Indication: Product used for unknown indication
  23. METAMIZOLE [Suspect]
     Active Substance: METAMIZOLE
     Indication: Product used for unknown indication
  24. PITOFENONE HYDROCHLORIDE [Suspect]
     Active Substance: PITOFENONE HYDROCHLORIDE
     Indication: Product used for unknown indication
  25. SIMETHICONE (DIMETHICONE) [Suspect]
     Active Substance: DIMETHICONE
     Indication: Product used for unknown indication
  26. SIMETHICONE (DIMETHICONE) [Suspect]
     Active Substance: DIMETHICONE
  27. PANCREATIN [Suspect]
     Active Substance: PANCRELIPASE
     Indication: Product used for unknown indication
  28. PANCREATIN [Suspect]
     Active Substance: PANCRELIPASE

REACTIONS (16)
  - Cerebrovascular accident [Unknown]
  - Hypoaesthesia [Unknown]
  - Inappropriate schedule of product administration [Unknown]
  - Neutrophil count abnormal [Unknown]
  - Balance disorder [Unknown]
  - Confusional state [Unknown]
  - Fall [Unknown]
  - Malaise [Unknown]
  - Limb discomfort [Unknown]
  - Gait disturbance [Unknown]
  - Musculoskeletal chest pain [Unknown]
  - Productive cough [Unknown]
  - Feeling cold [Unknown]
  - Chromaturia [Unknown]
  - Pyrexia [Unknown]
  - Decreased appetite [Unknown]
